FAERS Safety Report 22987266 (Version 7)
Quarter: 2023Q4

REPORT INFORMATION
  Report Type: Spontaneous
  Country: GB (occurrence: GB)
  Receive Date: 20230926
  Receipt Date: 20231114
  Transmission Date: 20240109
  Serious: Yes (Other)
  Sender: FDA-Public Use
  Company Number: GB-SANDOZ-SDZ2023GB028966

PATIENT
  Age: 61 Year
  Sex: Female

DRUGS (8)
  1. OMEPRAZOLE [Suspect]
     Active Substance: OMEPRAZOLE
     Indication: Hiatus hernia
     Dosage: 20MG, QD (ONE 20MG TAB A DAY FOR AROUND 3 WEEKS)
     Route: 065
     Dates: start: 20230629
  2. OMEPRAZOLE [Suspect]
     Active Substance: OMEPRAZOLE
     Indication: Duodenal ulcer
     Dosage: 20MG, QD(FOUR 20MG TAB A DAY FOR AROUND 3 WEEKS)
     Route: 065
  3. OMEPRAZOLE [Suspect]
     Active Substance: OMEPRAZOLE
     Dosage: 20MG,QD 2 20MG TAB FOR AROUND 8 WEEK A HIGH DOSE
     Route: 065
     Dates: start: 20230629
  4. OMEPRAZOLE [Suspect]
     Active Substance: OMEPRAZOLE
     Dosage: 4 DOSAGE FORM, QD (4 DF, QD FOR THREE WEEKS)
     Route: 065
  5. OMEPRAZOLE [Suspect]
     Active Substance: OMEPRAZOLE
     Dosage: 1 DOSAGE FORM, QD
     Route: 065
  6. ASPIRIN [Concomitant]
     Active Substance: ASPIRIN
     Indication: Product used for unknown indication
     Dosage: UNK
     Route: 065
  7. BISOPROLOL [Concomitant]
     Active Substance: BISOPROLOL\BISOPROLOL FUMARATE
     Indication: Product used for unknown indication
     Dosage: UNK
     Route: 065
  8. ASPIRIN [Concomitant]
     Active Substance: ASPIRIN
     Indication: Product used for unknown indication
     Dosage: UNK
     Route: 065

REACTIONS (10)
  - Deafness [Not Recovered/Not Resolved]
  - Tongue coated [Recovering/Resolving]
  - Headache [Recovering/Resolving]
  - Bone pain [Recovered/Resolved]
  - Condition aggravated [Recovered/Resolved]
  - Anxiety [Recovered/Resolved]
  - Tinnitus [Recovered/Resolved]
  - Restlessness [Recovered/Resolved]
  - Adverse drug reaction [Recovered/Resolved]
  - Off label use [Unknown]

NARRATIVE: CASE EVENT DATE: 20230629
